FAERS Safety Report 4458120-1 (Version None)
Quarter: 2004Q3

REPORT INFORMATION
  Report Type: 
  Country: None (occurrence: None)
  Receive Date: 20040924
  Receipt Date: 20040910
  Transmission Date: 20050211
  Serious: Yes (Hospitalization)
  Sender: FDA-Public Use
  Company Number: 91

PATIENT
  Age: 60 Year
  Sex: Male

DRUGS (8)
  1. MELPHALAN [Suspect]
     Indication: MULTIPLE MYELOMA
     Route: 042
     Dates: start: 20040728
  2. THALIDOMIDE [Suspect]
     Indication: MULTIPLE MYELOMA
  3. BORTEZOMIB [Concomitant]
  4. DEXAMETHASONE [Concomitant]
  5. CISPLATIN [Concomitant]
  6. ADRIAMYCIN PFS [Concomitant]
  7. CYCLOPHOSPHAMIDE [Concomitant]
  8. ETOPOSIDE [Concomitant]

REACTIONS (6)
  - BODY TEMPERATURE INCREASED [None]
  - C-REACTIVE PROTEIN INCREASED [None]
  - COUGH [None]
  - LUNG INFILTRATION [None]
  - PNEUMONIA [None]
  - PO2 DECREASED [None]
